FAERS Safety Report 13950656 (Version 2)
Quarter: 2017Q4

REPORT INFORMATION
  Report Type: Spontaneous
  Country: US (occurrence: US)
  Receive Date: 20170908
  Receipt Date: 20171114
  Transmission Date: 20180320
  Serious: No
  Sender: FDA-Public Use
  Company Number: PHEH2017US028703

PATIENT
  Age: 83 Year
  Sex: Female
  Weight: 76.19 kg

DRUGS (1)
  1. ENTRESTO [Suspect]
     Active Substance: SACUBITRIL\VALSARTAN
     Indication: CARDIAC FAILURE CONGESTIVE
     Dosage: 100 MG, UNK
     Route: 048
     Dates: start: 20170728, end: 20170803

REACTIONS (4)
  - Angioedema [Recovered/Resolved]
  - Lip swelling [Unknown]
  - Swelling face [Unknown]
  - Pruritus [Recovered/Resolved]

NARRATIVE: CASE EVENT DATE: 20170728
